FAERS Safety Report 8749256 (Version 2)
Quarter: 2012Q4

REPORT INFORMATION
  Report Type: Spontaneous
  Country: AU (occurrence: None)
  Receive Date: 20120809
  Receipt Date: 20120927
  Transmission Date: 20130627
  Serious: Yes (Hospitalization)
  Sender: FDA-Public Use
  Company Number: ACO_31280_2012

PATIENT
  Age: 63 Year
  Sex: Female

DRUGS (8)
  1. AMPYRA [Suspect]
     Indication: MULTIPLE SCLEROSIS
     Dosage: 10 MG, BID, ORAL
     Route: 048
     Dates: start: 20120420
  2. BACLOFEN [Concomitant]
  3. ASPIRIN [Concomitant]
  4. FISH OIL (FISH OIL) [Concomitant]
  5. METAMUCIL /00029101/ (PLANTAGO OVATA) [Concomitant]
  6. MOVICOL [Concomitant]
  7. PANADOL OSTEO (PARACETAMOL) [Concomitant]
  8. TYSABRI (NATALIZUMAB) [Concomitant]

REACTIONS (4)
  - Rotator cuff syndrome [None]
  - Bursitis [None]
  - Exostosis [None]
  - Osteopenia [None]
